FAERS Safety Report 10354048 (Version 1)
Quarter: 2014Q3

REPORT INFORMATION
  Report Type: Spontaneous
  Country: US (occurrence: None)
  Receive Date: 20140729
  Receipt Date: 20140729
  Transmission Date: 20150326
  Serious: No
  Sender: FDA-Public Use
  Company Number: None

PATIENT
  Age: 72 Year
  Sex: Female

DRUGS (1)
  1. TECFIDERA [Suspect]
     Active Substance: DIMETHYL FUMARATE
     Indication: MULTIPLE SCLEROSIS
     Route: 048
     Dates: start: 201401, end: 201407

REACTIONS (5)
  - Dementia [None]
  - Muscle spasms [None]
  - Feeling abnormal [None]
  - Hypoaesthesia oral [None]
  - Burning sensation [None]

NARRATIVE: CASE EVENT DATE: 20140728
